FAERS Safety Report 13932421 (Version 1)
Quarter: 2017Q3

REPORT INFORMATION
  Report Type: Spontaneous
  Country: US (occurrence: US)
  Receive Date: 20170904
  Receipt Date: 20170904
  Transmission Date: 20171127
  Serious: Yes (Other)
  Sender: FDA-Public Use
  Company Number: US-ZYDUS-016273

PATIENT
  Age: 66 Year
  Sex: Male

DRUGS (2)
  1. OMEPRAZOLE. [Suspect]
     Active Substance: OMEPRAZOLE
     Indication: PRODUCT USED FOR UNKNOWN INDICATION
     Route: 065
  2. DILTIAZEM. [Suspect]
     Active Substance: DILTIAZEM
     Indication: PRODUCT USED FOR UNKNOWN INDICATION
     Route: 065

REACTIONS (11)
  - Skin ulcer [Recovered/Resolved]
  - Nikolsky^s sign [Recovered/Resolved]
  - Rash generalised [Recovered/Resolved]
  - Lymphocytic infiltration [Recovered/Resolved]
  - Subacute cutaneous lupus erythematosus [Recovered/Resolved]
  - Dermatitis [Recovered/Resolved]
  - Hepatic enzyme increased [Recovered/Resolved]
  - Skin atrophy [Recovered/Resolved]
  - Epidermal necrosis [Recovered/Resolved]
  - Exfoliative rash [Recovered/Resolved]
  - Skin erosion [Recovered/Resolved]
